FAERS Safety Report 7074841-9 (Version None)
Quarter: 2010Q4

REPORT INFORMATION
  Report Type: 
  Country: None (occurrence: None)
  Receive Date: 20101029
  Receipt Date: 20101021
  Transmission Date: 20110411
  Serious: Yes (Hospitalization)
  Sender: FDA-Public Use
  Company Number: JP-GENENTECH-307723

PATIENT
  Sex: Female
  Weight: 44 kg

DRUGS (8)
  1. XOLAIR [Suspect]
     Indication: ASTHMA
     Dosage: 300 MG, 1/MONTH
     Route: 058
     Dates: start: 20100415
  2. SALMETEROL XINAFOATE [Concomitant]
     Dosage: 1000 A?G/HR, UNK
     Dates: start: 20091027
  3. TAKEPRON [Concomitant]
     Dosage: 30 MG, UNK
     Dates: start: 20100415
  4. FERROUS CITRATE [Concomitant]
     Dosage: UNK
     Dates: start: 20100415
  5. CRESTOR [Concomitant]
     Dosage: UNK
     Dates: start: 20100415
  6. TICLOPIDINE HCL [Concomitant]
     Dosage: UNK
     Dates: start: 20100415
  7. CANDESARTAN CILEXETIL [Concomitant]
     Dosage: UNK
     Dates: start: 20100415
  8. LASIX [Concomitant]
     Dosage: UNK
     Dates: start: 20100415

REACTIONS (1)
  - ASTHMA [None]
